FAERS Safety Report 6257743-7 (Version None)
Quarter: 2009Q3

REPORT INFORMATION
  Report Type: 
  Country: None (occurrence: None)
  Receive Date: 20090702
  Receipt Date: 20090623
  Transmission Date: 20100115
  Serious: Yes (Hospitalization)
  Sender: FDA-Public Use
  Company Number: GXKR2009CH07266

PATIENT
  Age: 67 Year
  Sex: Male

DRUGS (7)
  1. AMLODIPINE [Suspect]
     Indication: ESSENTIAL HYPERTENSION
     Dosage: 5 MG, BID, ORAL
     Route: 048
  2. TEGRETOL [Suspect]
     Indication: GRAND MAL CONVULSION
     Dosage: 400 MG, BID, ORAL, 200 MG, BID, ORAL
     Route: 048
     Dates: start: 20080902, end: 20081112
  3. TEGRETOL [Suspect]
     Indication: GRAND MAL CONVULSION
     Dosage: 400 MG, BID, ORAL, 200 MG, BID, ORAL
     Route: 048
     Dates: start: 20081113
  4. HYDROCHLOROTHIAZIDE [Concomitant]
  5. URSODIOL [Concomitant]
  6. CO-DIOVAN            (HYDROCHLOROTHIAZIDE, VALSARTAN) COATED TABLET [Concomitant]
  7. CONCOR         (BISOPROLOL FUMARATE) TABLET [Concomitant]

REACTIONS (8)
  - ANTICONVULSANT DRUG LEVEL INCREASED [None]
  - ATAXIA [None]
  - C-REACTIVE PROTEIN INCREASED [None]
  - CONDITION AGGRAVATED [None]
  - CONVULSION [None]
  - DRUG INTERACTION [None]
  - ELECTROENCEPHALOGRAM ABNORMAL [None]
  - SPEECH DISORDER [None]
